FAERS Safety Report 21734596 (Version 3)
Quarter: 2023Q2

REPORT INFORMATION
  Report Type: Report from Study
  Country: IT (occurrence: IT)
  Receive Date: 20221215
  Receipt Date: 20230427
  Transmission Date: 20230722
  Serious: Yes (Hospitalization, Other)
  Sender: FDA-Public Use
  Company Number: IT-002147023-NVSC2022IT240023

PATIENT
  Age: 76 Year
  Sex: Female
  Weight: 69 kg

DRUGS (28)
  1. RYDAPT [Suspect]
     Active Substance: MIDOSTAURIN
     Indication: Systemic mastocytosis
     Dosage: 100 MG, BID
     Route: 048
     Dates: start: 20220623, end: 20221025
  2. RYDAPT [Suspect]
     Active Substance: MIDOSTAURIN
     Dosage: 50 MG, BID
     Route: 048
     Dates: start: 20221026
  3. ENOXAPARIN [Concomitant]
     Active Substance: ENOXAPARIN
     Indication: Product used for unknown indication
     Dosage: 6000 UL, Q12H
     Route: 065
     Dates: start: 20221003, end: 20221021
  4. METOPROLOL [Concomitant]
     Active Substance: METOPROLOL
     Indication: Product used for unknown indication
     Dosage: 50 MG, Q12H
     Route: 065
     Dates: start: 20221003
  5. AMIODARONE [Concomitant]
     Active Substance: AMIODARONE
     Indication: Product used for unknown indication
     Dosage: 200 MG, QD
     Route: 048
     Dates: start: 20221024
  6. DABIGATRAN [Concomitant]
     Active Substance: DABIGATRAN
     Indication: Product used for unknown indication
     Dosage: 110 MG, Q12H
     Route: 065
     Dates: start: 20221024
  7. EPINEPHRINE [Concomitant]
     Active Substance: EPINEPHRINE
     Indication: Anaphylactic reaction
     Dosage: UNK
     Route: 065
     Dates: start: 2010
  8. EPINEPHRINE [Concomitant]
     Active Substance: EPINEPHRINE
     Dosage: 300 MCG/ML, PRN (AS NEEDED)
     Route: 065
  9. CHOLECALCIFEROL [Concomitant]
     Active Substance: CHOLECALCIFEROL
     Indication: Osteoporosis
     Dosage: UNK
     Route: 065
     Dates: start: 201701
  10. CHOLECALCIFEROL [Concomitant]
     Active Substance: CHOLECALCIFEROL
     Dosage: 10000 UI/ML, 8 GTT DAILY
     Route: 065
  11. CALCITRIOL [Concomitant]
     Active Substance: CALCITRIOL
     Indication: Osteoporosis
     Dosage: UNK
     Route: 065
     Dates: start: 201701
  12. CALCITRIOL [Concomitant]
     Active Substance: CALCITRIOL
     Dosage: 0.5 UG, QD
     Route: 065
  13. OMEPRAZOLE [Concomitant]
     Active Substance: OMEPRAZOLE
     Indication: Gastric disorder
     Dosage: UNK
     Route: 065
     Dates: start: 201704
  14. OMEPRAZOLE [Concomitant]
     Active Substance: OMEPRAZOLE
     Dosage: 40 MG, QD
     Route: 065
  15. KETOTIFEN [Concomitant]
     Active Substance: KETOTIFEN
     Indication: Pruritus
     Dosage: UNK
     Route: 065
     Dates: start: 20160923
  16. KETOTIFEN [Concomitant]
     Active Substance: KETOTIFEN
     Dosage: 2 MG, PRN (AS NEEDED)
     Route: 065
  17. RAMIPRIL [Concomitant]
     Active Substance: RAMIPRIL
     Indication: Hypertension
     Dosage: UNK
     Route: 065
     Dates: start: 20110218
  18. RAMIPRIL [Concomitant]
     Active Substance: RAMIPRIL
     Dosage: 2.5 MG, QD
     Route: 065
     Dates: end: 20221003
  19. FUROSEMIDE [Concomitant]
     Active Substance: FUROSEMIDE
     Indication: Fluid retention
     Dosage: UNK
     Route: 065
     Dates: start: 20170519
  20. FUROSEMIDE [Concomitant]
     Active Substance: FUROSEMIDE
     Dosage: 75 MG, QD
     Route: 065
  21. LORATADINE [Concomitant]
     Active Substance: LORATADINE
     Indication: Pruritus
     Dosage: UNK
     Route: 065
     Dates: start: 20170519
  22. LORATADINE [Concomitant]
     Active Substance: LORATADINE
     Dosage: 10 MG, QD
     Route: 065
  23. HYDROXYZINE [Concomitant]
     Active Substance: HYDROXYZINE HYDROCHLORIDE
     Indication: Product used for unknown indication
     Dosage: UNK
     Route: 065
     Dates: start: 20110202
  24. HYDROXYZINE [Concomitant]
     Active Substance: HYDROXYZINE HYDROCHLORIDE
     Dosage: 25 MG, PRN (AS NEEDED)
     Route: 065
  25. ALPRAZOLAM [Concomitant]
     Active Substance: ALPRAZOLAM
     Indication: Depression
     Dosage: UNK
     Route: 065
     Dates: start: 2017
  26. ALPRAZOLAM [Concomitant]
     Active Substance: ALPRAZOLAM
     Dosage: 0.75 MG, QD
     Route: 065
  27. DENOSUMAB [Concomitant]
     Active Substance: DENOSUMAB
     Indication: Osteoporosis
     Dosage: UNK
     Route: 065
     Dates: start: 20200308
  28. DENOSUMAB [Concomitant]
     Active Substance: DENOSUMAB
     Dosage: 60 MG EVERY 6 MONTHS
     Route: 065

REACTIONS (7)
  - Atrial fibrillation [Recovered/Resolved]
  - Pericarditis [Recovered/Resolved]
  - Vomiting [Recovered/Resolved]
  - Diarrhoea [Recovered/Resolved]
  - Diarrhoea [Recovered/Resolved]
  - Nausea [Not Recovered/Not Resolved]
  - Bone pain [Not Recovered/Not Resolved]

NARRATIVE: CASE EVENT DATE: 20220625
